FAERS Safety Report 5870548-1 (Version None)
Quarter: 2008Q3

REPORT INFORMATION
  Report Type: 
  Country: None (occurrence: None)
  Receive Date: 20080902
  Receipt Date: 20080815
  Transmission Date: 20090109
  Serious: Yes (Other)
  Sender: FDA-Public Use
  Company Number: 2008S1013499

PATIENT
  Age: 45 Year
  Sex: Female

DRUGS (2)
  1. ESTRADIOL TRANSDERMAL SYSTEM, USP (0.1 MG/DAY) [Suspect]
     Indication: MIGRAINE
     Dosage: 0.1 MG; DAILY; TRANSDERMAL
     Route: 062
     Dates: start: 20070101, end: 20080724
  2. PROTONIX [Concomitant]

REACTIONS (8)
  - APPLICATION SITE IRRITATION [None]
  - APPLICATION SITE MASS [None]
  - APPLICATION SITE PAIN [None]
  - APPLICATION SITE PRURITUS [None]
  - DISCOMFORT [None]
  - ERYTHEMA [None]
  - FURUNCLE [None]
  - STAPHYLOCOCCAL SKIN INFECTION [None]
